FAERS Safety Report 18727518 (Version 1)
Quarter: 2021Q1

REPORT INFORMATION
  Report Type: Spontaneous
  Country: US (occurrence: US)
  Receive Date: 20210111
  Receipt Date: 20210111
  Transmission Date: 20210419
  Serious: Yes (Other)
  Sender: FDA-Public Use
  Company Number: US-PFIZER INC-2020515913

PATIENT
  Age: 47 Year
  Sex: Female

DRUGS (1)
  1. DETROL LA [Suspect]
     Active Substance: TOLTERODINE TARTRATE
     Indication: HYPERTONIC BLADDER
     Dosage: 2 MG

REACTIONS (4)
  - Nocturia [Unknown]
  - Diabetes mellitus inadequate control [Unknown]
  - Sleep disorder [Unknown]
  - Product prescribing error [Unknown]
